FAERS Safety Report 12341276 (Version 1)
Quarter: 2016Q2

REPORT INFORMATION
  Report Type: Spontaneous
  Country: US (occurrence: None)
  Receive Date: 20160505
  Receipt Date: 20160505
  Transmission Date: 20160815
  Serious: Yes (Hospitalization)
  Sender: FDA-Public Use
  Company Number: None

PATIENT
  Age: 14 Year
  Sex: Male
  Weight: 122 kg

DRUGS (2)
  1. CYCLOPHOSPHAMIDE. [Suspect]
     Active Substance: CYCLOPHOSPHAMIDE
     Dates: end: 20160416
  2. ETOPOSIDE (VP-16) [Suspect]
     Active Substance: ETOPOSIDE
     Dates: end: 20160416

REACTIONS (12)
  - Arthralgia [None]
  - Necrotising fasciitis [None]
  - Hyperglycaemia [None]
  - Septic shock [None]
  - Streptococcal infection [None]
  - Blood culture positive [None]
  - Escherichia infection [None]
  - Asthma [None]
  - Thrombocytopenia [None]
  - Mental status changes [None]
  - Anaemia [None]
  - Rhabdomyolysis [None]

NARRATIVE: CASE EVENT DATE: 20160421
